FAERS Safety Report 16889733 (Version 1)
Quarter: 2019Q4

REPORT INFORMATION
  Report Type: Spontaneous
  Country: NO (occurrence: NO)
  Receive Date: 20191007
  Receipt Date: 20191007
  Transmission Date: 20200122
  Serious: Yes (Disabling, Other)
  Sender: FDA-Public Use
  Company Number: NO-PFIZER INC-2019425241

PATIENT
  Age: 49 Year
  Sex: Female

DRUGS (5)
  1. FOLIC ACID. [Concomitant]
     Active Substance: FOLIC ACID
  2. METHOTREXATE SODIUM. [Suspect]
     Active Substance: METHOTREXATE SODIUM
     Indication: RHEUMATOID ARTHRITIS
     Dosage: 20 MG, UNK
     Dates: start: 20030801
  3. METEX [METHOTREXATE SODIUM] [Suspect]
     Active Substance: METHOTREXATE SODIUM
     Indication: RHEUMATOID ARTHRITIS
     Dosage: 25 MG, UNK
     Dates: end: 20170501
  4. TRAMAGETIC [Concomitant]
     Active Substance: TRAMADOL
  5. ENBREL [Concomitant]
     Active Substance: ETANERCEPT

REACTIONS (4)
  - Oedema peripheral [Unknown]
  - Osteonecrosis [Recovered/Resolved with Sequelae]
  - Tibia fracture [Unknown]
  - Fracture [Unknown]

NARRATIVE: CASE EVENT DATE: 20160101
